FAERS Safety Report 9204446 (Version 1)
Quarter: 2013Q2

REPORT INFORMATION
  Report Type: Spontaneous
  Country: US (occurrence: US)
  Receive Date: 20130402
  Receipt Date: 20130402
  Transmission Date: 20140414
  Serious: No
  Sender: FDA-Public Use
  Company Number: US-BAYER-2013-041488

PATIENT
  Age: 46 Year
  Sex: Female
  Weight: 95 kg

DRUGS (1)
  1. ALEVE CAPLET [Suspect]
     Indication: BACK PAIN
     Dosage: 2 DF, QD
     Route: 048
     Dates: start: 201209

REACTIONS (2)
  - Overdose [Recovered/Resolved]
  - Incorrect drug administration duration [Recovered/Resolved]
